FAERS Safety Report 16118505 (Version 1)
Quarter: 2019Q1

REPORT INFORMATION
  Report Type: Report from Study
  Country: MX (occurrence: MX)
  Receive Date: 20190326
  Receipt Date: 20190326
  Transmission Date: 20190418
  Serious: Yes (Other)
  Sender: FDA-Public Use
  Company Number: MX-INCYTE CORPORATION-2019IN002587

PATIENT

DRUGS (2)
  1. REVOLADE [Suspect]
     Active Substance: ELTROMBOPAG
     Indication: PLATELET PRODUCTION DECREASED
     Dosage: 2 DF (25 MG), QD
     Route: 048
     Dates: start: 20190212, end: 20190311
  2. JAKAVI [Suspect]
     Active Substance: RUXOLITINIB
     Indication: MYELOFIBROSIS
     Dosage: 25 MG, Q12H
     Route: 048
     Dates: start: 20190212, end: 20190311

REACTIONS (1)
  - Terminal state [Not Recovered/Not Resolved]
